FAERS Safety Report 7235314-3 (Version None)
Quarter: 2011Q1

REPORT INFORMATION
  Report Type: 
  Country: None (occurrence: None)
  Receive Date: 20110120
  Receipt Date: 20110112
  Transmission Date: 20110831
  Serious: Yes (Other)
  Sender: FDA-Public Use
  Company Number: JP-EISAI INC-E3810-03789-SPO-JP

PATIENT
  Sex: Female
  Weight: 45 kg

DRUGS (18)
  1. FERROUS FUMARATE [Concomitant]
     Route: 048
  2. KETOPROFEN [Concomitant]
     Dosage: UNKNOWN
  3. PARIET (RABEPRAZOLE) [Suspect]
     Route: 048
     Dates: start: 20090603, end: 20100424
  4. TAKA-DIASTASE [Concomitant]
     Route: 048
     Dates: start: 20080409
  5. ACUATIM [Concomitant]
     Dosage: UNKNOWN
  6. MEIACT [Concomitant]
     Route: 048
  7. PARIET (RABEPRAZOLE) [Suspect]
     Route: 048
     Dates: start: 20031201, end: 20090602
  8. SELBEX [Concomitant]
     Route: 048
     Dates: start: 20080526
  9. CEREKINON [Concomitant]
     Route: 048
     Dates: start: 20090126
  10. GANATON [Concomitant]
     Route: 048
     Dates: start: 20080526
  11. NON-PYRINE COLD PREPARATION [Concomitant]
     Dosage: UNKNOWN
     Route: 065
     Dates: start: 20080709
  12. PARIET (RABEPRAZOLE) [Suspect]
     Indication: REFLUX OESOPHAGITIS
     Route: 048
     Dates: start: 20100425, end: 20100506
  13. MOSAPRIDE CITRATE [Concomitant]
     Route: 048
     Dates: start: 20080409
  14. TERNELIN [Concomitant]
     Route: 048
  15. CLOFEDANOL HYDROCHLORIDE [Concomitant]
     Route: 048
     Dates: start: 20080709
  16. FERROUS CITRATE [Concomitant]
     Indication: IRON DEFICIENCY ANAEMIA
     Route: 048
     Dates: start: 20031201
  17. BETAMETHASONE VALERATE [Concomitant]
     Dosage: UNKNOWN
     Dates: end: 20100421
  18. LOPEMIN [Concomitant]
     Route: 048

REACTIONS (1)
  - COLITIS COLLAGENOUS [None]
